FAERS Safety Report 7588318-5 (Version None)
Quarter: 2011Q3

REPORT INFORMATION
  Report Type: 
  Country: None (occurrence: None)
  Receive Date: 20110705
  Receipt Date: 20090406
  Transmission Date: 20111222
  Serious: Yes (Other)
  Sender: FDA-Public Use
  Company Number: US-BAYER-200918250NA

PATIENT
  Age: 56 Year
  Sex: Male
  Weight: 79 kg

DRUGS (19)
  1. TRASYLOL [Suspect]
     Indication: AORTIC VALVE REPLACEMENT
     Dosage: 50 CC/HOUR
     Route: 042
     Dates: start: 20060210, end: 20060210
  2. GEMFIBROZIL [Concomitant]
     Dosage: 600 MG, QD
     Route: 048
     Dates: start: 20030101, end: 20080101
  3. TOPROL-XL [Concomitant]
     Dosage: 25 MG, QD
     Route: 048
     Dates: start: 20060101, end: 20061001
  4. ISOVUE-128 [Concomitant]
     Dosage: UNK
     Route: 042
     Dates: start: 20060103
  5. HYDROCHLOROTHIAZIDE [Concomitant]
     Dosage: UNK
     Route: 048
     Dates: start: 20071201
  6. TRASYLOL [Suspect]
     Indication: ECHOCARDIOGRAM
  7. HEPARIN [Concomitant]
     Dosage: 310 MG
     Route: 042
     Dates: start: 20060210
  8. VASOPRESSIN [Concomitant]
     Dosage: UNK
     Route: 042
     Dates: start: 20060210
  9. DOBUTAMINE HCL [Concomitant]
     Dosage: UNK
     Route: 042
     Dates: start: 20060210
  10. ISOVUE-128 [Concomitant]
     Dosage: UNK
     Route: 042
     Dates: start: 20060210
  11. TRASYLOL [Suspect]
     Indication: CORONARY ARTERY BYPASS
     Dosage: 200 CC LOADING DOSE
     Route: 042
     Dates: start: 20060210, end: 20060210
  12. PRINZIDE [Concomitant]
     Dosage: 20/12.5 MG
     Route: 048
     Dates: start: 20030101, end: 20060701
  13. SOLU-MEDROL [Concomitant]
     Dosage: 125 MG
     Route: 042
     Dates: start: 20060210
  14. NICARDIPINE HCL [Concomitant]
     Dosage: UNK
     Route: 042
     Dates: start: 20060210
  15. ACETYLSALICYLIC ACID SRT [Concomitant]
     Dosage: 81 MG, QD
     Route: 048
  16. INSULIN [Concomitant]
     Dosage: 10 UNITS
     Route: 042
     Dates: start: 20060210
  17. VISIPAQUE [Concomitant]
     Dosage: 60 CC
     Route: 042
  18. PRAVACHOL [Concomitant]
     Dosage: 20-40 MG DAILY
     Route: 048
     Dates: start: 20030101, end: 20060301
  19. PROTAMINE SULFATE [Concomitant]
     Dosage: 200 MG
     Route: 042
     Dates: start: 20060210

REACTIONS (13)
  - UNEVALUABLE EVENT [None]
  - PAIN [None]
  - RENAL INJURY [None]
  - FEAR [None]
  - MULTI-ORGAN FAILURE [None]
  - MYOCARDIAL INFARCTION [None]
  - EMOTIONAL DISTRESS [None]
  - ANHEDONIA [None]
  - RENAL IMPAIRMENT [None]
  - ANXIETY [None]
  - RENAL FAILURE [None]
  - STRESS [None]
  - INJURY [None]
